FAERS Safety Report 22143179 (Version 3)
Quarter: 2023Q4

REPORT INFORMATION
  Report Type: Report from Study
  Country: US (occurrence: US)
  Receive Date: 20230327
  Receipt Date: 20231226
  Transmission Date: 20240109
  Serious: Yes (Other)
  Sender: FDA-Public Use
  Company Number: US-TAKEDA-2023TUS029971

PATIENT
  Age: 52 Year
  Sex: Male

DRUGS (1)
  1. VEDOLIZUMAB [Suspect]
     Active Substance: VEDOLIZUMAB
     Indication: Crohn^s disease
     Dosage: 300 MILLIGRAM
     Route: 042
     Dates: start: 202203

REACTIONS (4)
  - Loss of consciousness [Unknown]
  - Poor venous access [Unknown]
  - Nervousness [Recovered/Resolved]
  - Therapeutic reaction time decreased [Recovered/Resolved]

NARRATIVE: CASE EVENT DATE: 20230317
